FAERS Safety Report 21463310 (Version 1)
Quarter: 2022Q4

REPORT INFORMATION
  Report Type: Report from Study
  Country: US (occurrence: US)
  Receive Date: 20221017
  Receipt Date: 20221017
  Transmission Date: 20230113
  Serious: No
  Sender: FDA-Public Use
  Company Number: US-ABBVIE-4144805

PATIENT
  Sex: Female

DRUGS (4)
  1. HUMIRA [Suspect]
     Active Substance: ADALIMUMAB
     Indication: Product used for unknown indication
     Route: 058
  2. Moderna [Concomitant]
     Indication: COVID-19 immunisation
     Dosage: FREQUENCY- 1-1-ONCE?BOOSTER DOSE
     Route: 030
     Dates: start: 20211204, end: 20211204
  3. Pfizer/BioNTech [Concomitant]
     Indication: COVID-19 immunisation
     Dosage: FREQUENCY- 1-1-ONCE?FIRST DOSE
     Route: 030
     Dates: start: 20210114, end: 20210114
  4. Pfizer/BioNTech [Concomitant]
     Indication: COVID-19 immunisation
     Dosage: FREQUENCY- 1-1-ONCE?SECOND DOSE
     Dates: start: 20210204, end: 20210204

REACTIONS (3)
  - Arthropod bite [Unknown]
  - Swelling [Unknown]
  - Papule [Unknown]
